FAERS Safety Report 6384272-2 (Version None)
Quarter: 2009Q3

REPORT INFORMATION
  Report Type: 
  Country: None (occurrence: None)
  Receive Date: 20090928
  Receipt Date: 20090914
  Transmission Date: 20100115
  Serious: Yes (Death)
  Sender: FDA-Public Use
  Company Number: 007610

PATIENT
  Age: 20 Year
  Sex: Male

DRUGS (2)
  1. BUSULFEX [Suspect]
     Indication: STEM CELL TRANSPLANT
     Dosage: 16 MG/KG, QD
     Route: 042
  2. CYCLOPHOSPHAMIDE [Concomitant]

REACTIONS (2)
  - BK VIRUS INFECTION [None]
  - GRAFT VERSUS HOST DISEASE [None]
